FAERS Safety Report 19712705 (Version 6)
Quarter: 2021Q4

REPORT INFORMATION
  Report Type: Report from Study
  Country: JP (occurrence: JP)
  Receive Date: 20210816
  Receipt Date: 20211214
  Transmission Date: 20220303
  Serious: Yes (Hospitalization, Other)
  Sender: FDA-Public Use
  Company Number: JP-BRISTOL-MYERS SQUIBB COMPANY-BMS-2021-079088

PATIENT
  Age: 65 Year
  Sex: Male
  Weight: 48.5 kg

DRUGS (16)
  1. NIVOLUMAB [Suspect]
     Active Substance: NIVOLUMAB
     Indication: Oesophageal carcinoma
     Dosage: 360 MILLIGRAM, Q3WK
     Route: 041
     Dates: start: 20210708, end: 20210729
  2. ERIBULIN MESYLATE [Suspect]
     Active Substance: ERIBULIN MESYLATE
     Indication: Oesophageal carcinoma
     Dosage: 2.1 MILLIGRAM/SQ. METER, Q3WK
     Route: 065
     Dates: start: 20210708
  3. ERIBULIN MESYLATE [Suspect]
     Active Substance: ERIBULIN MESYLATE
     Dosage: 1.7 MILLIGRAM/SQ. METER, Q3WK
     Route: 065
     Dates: start: 20210729, end: 20210729
  4. VONOPRAZAN FUMARATE [Concomitant]
     Active Substance: VONOPRAZAN FUMARATE
     Indication: Gastritis prophylaxis
     Dosage: 20 MG, EVERYDAY
     Route: 048
     Dates: start: 2021
  5. MOSAPRIDE CITRATE [Concomitant]
     Active Substance: MOSAPRIDE CITRATE
     Indication: Gastritis prophylaxis
     Dosage: 5 MG, Q8H
     Route: 048
     Dates: start: 20210527
  6. LOXOPROFEN SODIUM [Concomitant]
     Active Substance: LOXOPROFEN SODIUM
     Indication: Back pain
     Dosage: 50 MG, PRN
     Route: 062
     Dates: start: 20210624
  7. MAGNESIUM OXIDE [Concomitant]
     Active Substance: MAGNESIUM OXIDE
     Indication: Constipation
     Dosage: 660 MG, Q8H
     Route: 048
     Dates: start: 2021
  8. AMLODIPINE [Concomitant]
     Active Substance: AMLODIPINE BESYLATE
     Indication: Hypertension
     Dosage: 5 MG, EVERYDAY
     Route: 048
     Dates: start: 2008
  9. BROTIZOLAM [Concomitant]
     Active Substance: BROTIZOLAM
     Indication: Insomnia
     Dosage: 0.25 MG, PRN
     Route: 048
  10. SODIUM GUALENATE MONOHYDRATE [Concomitant]
     Active Substance: SODIUM GUALENATE MONOHYDRATE
     Indication: Prophylaxis
     Dosage: 5 DROP, PRN
     Route: 002
     Dates: start: 20210708
  11. TOPSYM [Concomitant]
     Indication: Pruritus
     Dosage: APPROPRIATE AMOUNT, Q12H
     Route: 061
     Dates: start: 20210715
  12. DICLOFENAC SODIUM [Concomitant]
     Active Substance: DICLOFENAC SODIUM
     Indication: Prophylaxis
     Dosage: 25 MG, PRN
     Route: 048
     Dates: start: 20210726
  13. SODIUM BICARBONATE [Concomitant]
     Active Substance: SODIUM BICARBONATE
     Indication: Prophylaxis
     Dosage: 0.5 G, PRN
     Route: 048
     Dates: start: 20210726
  14. TRANEXAMIC ACID [Concomitant]
     Active Substance: TRANEXAMIC ACID
     Indication: Prophylaxis
     Dosage: 250 MG, PRN
     Route: 048
     Dates: start: 20210726
  15. ELNEOPA NF NO.1 [Concomitant]
     Indication: Nutritional supplementation
     Dosage: 1500 ML, EVERYDAY, INJECTION
     Route: 042
     Dates: start: 20210805
  16. SOLDEM 3A [Concomitant]
     Active Substance: CARBOHYDRATES\POTASSIUM CHLORIDE\SODIUM CHLORIDE\SODIUM LACTATE
     Indication: Fluid replacement
     Dosage: 500 MILLILITER, QD
     Route: 042
     Dates: start: 20210804

REACTIONS (2)
  - Febrile neutropenia [Recovered/Resolved]
  - Acute kidney injury [Recovered/Resolved with Sequelae]

NARRATIVE: CASE EVENT DATE: 20210804
